FAERS Safety Report 5754830-4 (Version None)
Quarter: 2008Q2

REPORT INFORMATION
  Report Type: 
  Country: None (occurrence: None)
  Receive Date: 20080527
  Receipt Date: 20080501
  Transmission Date: 20081010
  Serious: Yes (Hospitalization)
  Sender: FDA-Public Use
  Company Number: 2008AL005316

PATIENT
  Age: 26 Year
  Sex: Male

DRUGS (3)
  1. DIAZEPAM [Suspect]
     Dosage: PRN
  2. DISULFIRAM [Concomitant]
  3. CLOMIPRAMINE HCL [Concomitant]

REACTIONS (9)
  - ABNORMAL BEHAVIOUR [None]
  - ACUTE PSYCHOSIS [None]
  - AGITATION [None]
  - ALCOHOL ABUSE [None]
  - DELIRIUM [None]
  - DRUG INTERACTION [None]
  - INSOMNIA [None]
  - NUCLEAR MAGNETIC RESONANCE IMAGING BRAIN ABNORMAL [None]
  - PSYCHOMOTOR HYPERACTIVITY [None]
